FAERS Safety Report 8201234-0 (Version None)
Quarter: 2012Q1

REPORT INFORMATION
  Report Type: 
  Country: None (occurrence: None)
  Receive Date: 20120312
  Receipt Date: 20120306
  Transmission Date: 20120608
  Serious: Yes (Other)
  Sender: FDA-Public Use
  Company Number: US-GILEAD-2012-0049864

PATIENT
  Sex: Female

DRUGS (2)
  1. AMBRISENTAN [Suspect]
     Indication: PULMONARY HYPERTENSION
     Dosage: 5 MG, UNK
     Route: 048
  2. AMBRISENTAN [Suspect]
     Indication: SCLERODERMA

REACTIONS (2)
  - PNEUMONIA ASPIRATION [None]
  - RESPIRATORY FAILURE [None]
